FAERS Safety Report 4902001-3 (Version None)
Quarter: 2006Q1

REPORT INFORMATION
  Report Type: 
  Country: None (occurrence: None)
  Receive Date: 20060201
  Receipt Date: 20060201
  Transmission Date: 20060701
  Serious: Yes (Hospitalization)
  Sender: FDA-Public Use
  Company Number: None

PATIENT
  Sex: Male
  Weight: 69.2 kg

DRUGS (20)
  1. IBUPROFEN [Suspect]
     Indication: INFLAMMATION
     Dosage: 800MG  TID ORAL
     Route: 048
     Dates: start: 20050923, end: 20051130
  2. IBUPROFEN [Suspect]
     Indication: PAIN
     Dosage: 800MG  TID ORAL
     Route: 048
     Dates: start: 20050923, end: 20051130
  3. ALLOPURINOL [Concomitant]
  4. ASPIRIN [Concomitant]
  5. BACITRACIN [Concomitant]
  6. CODEINE/APAP [Concomitant]
  7. COLCHICINE [Concomitant]
  8. DIGOXIN [Concomitant]
  9. DOCUSATE [Concomitant]
  10. FOSINOPRIL SODIUM [Concomitant]
  11. FUROSEMIDE [Concomitant]
  12. HYDRALAZINE [Concomitant]
  13. HYDROPHILIC POWDER WOUND DRESSING [Concomitant]
  14. ISOSORBIDE MONONITRATE [Concomitant]
  15. NITROGLYCERIN [Concomitant]
  16. OMEPRAZOLE [Concomitant]
  17. PAD, ABDOMINAL [Concomitant]
  18. POTASSIUM CHLORIDE [Concomitant]
  19. SIMVASTATIN [Concomitant]
  20. TELFA-PAD NON-ADHESIVE [Concomitant]

REACTIONS (3)
  - CARDIAC FAILURE [None]
  - CONDITION AGGRAVATED [None]
  - TREATMENT NONCOMPLIANCE [None]
